FAERS Safety Report 11499713 (Version 1)
Quarter: 2015Q3

REPORT INFORMATION
  Report Type: Spontaneous
  Country: US (occurrence: None)
  Receive Date: 20150911
  Receipt Date: 20150911
  Transmission Date: 20151125
  Serious: Yes (Other)
  Sender: FDA-Public Use
  Company Number: None

PATIENT
  Sex: Female

DRUGS (3)
  1. CALCIUM CARBONATE + VITAMIN D CAPLET (CA CARBONATE + VITAMIN D) [Suspect]
     Active Substance: CALCIUM CARBONATE\CHOLECALCIFEROL
     Indication: HYPERPARATHYROIDISM SECONDARY
  2. CALCITRIOL (FORMULATION UNKNOWN) (CALCITRIOL) [Suspect]
     Active Substance: CALCITRIOL
     Indication: HYPERPARATHYROIDISM SECONDARY
  3. CALCIUM CARBONATE (FORMULATION UNKNOWN) (CALCIUM CARBONATE) [Suspect]
     Active Substance: CALCIUM CARBONATE
     Indication: HYPERPARATHYROIDISM SECONDARY
     Route: 048

REACTIONS (4)
  - Drug administration error [None]
  - Renal failure [None]
  - Hyperoxaluria [None]
  - Drug interaction [None]
